FAERS Safety Report 23622730 (Version 1)
Quarter: 2024Q1

REPORT INFORMATION
  Report Type: Spontaneous
  Country: HR (occurrence: HR)
  Receive Date: 20240312
  Receipt Date: 20240312
  Transmission Date: 20240410
  Serious: Yes (Other)
  Sender: FDA-Public Use
  Company Number: None

PATIENT
  Sex: Female

DRUGS (2)
  1. TEGRETOL [Suspect]
     Active Substance: CARBAMAZEPINE
     Indication: Product used for unknown indication
     Dosage: UNK, CIJELA KUTIJU TEGRETOLA
     Route: 048
     Dates: start: 20240103, end: 20240103
  2. KETOPROFEN [Suspect]
     Active Substance: KETOPROFEN
     Indication: Product used for unknown indication
     Dosage: UNK (KUTIJA KEPPRE NE ZNA SE OD KOLIKO MG)
     Route: 048
     Dates: start: 20240103, end: 20240103

REACTIONS (5)
  - Unresponsive to stimuli [Unknown]
  - Hyporesponsive to stimuli [Unknown]
  - Suicide attempt [Unknown]
  - Epilepsy [Unknown]
  - Intentional overdose [Unknown]

NARRATIVE: CASE EVENT DATE: 20240103
